FAERS Safety Report 7791016-6 (Version None)
Quarter: 2011Q4

REPORT INFORMATION
  Report Type: 
  Country: None (occurrence: None)
  Receive Date: 20111003
  Receipt Date: 20110922
  Transmission Date: 20120403
  Serious: Yes (Hospitalization)
  Sender: FDA-Public Use
  Company Number: FR-BIOGENIDEC-2011BI019023

PATIENT
  Age: 21 Year
  Sex: Female
  Weight: 64 kg

DRUGS (5)
  1. CLONAZEPAM [Concomitant]
     Indication: MUSCLE SPASTICITY
     Route: 048
     Dates: start: 20070701
  2. TYSABRI [Suspect]
     Indication: MULTIPLE SCLEROSIS
     Route: 042
     Dates: start: 20071023, end: 20110214
  3. NASACORT [Concomitant]
     Dates: start: 20110221
  4. TYSABRI [Suspect]
     Route: 042
     Dates: start: 20110408
  5. TOPLEXIL [Concomitant]
     Dates: start: 20110221

REACTIONS (1)
  - ACUTE PSYCHOSIS [None]
